FAERS Safety Report 4743292-1 (Version None)
Quarter: 2005Q3

REPORT INFORMATION
  Report Type: 
  Country: None (occurrence: None)
  Receive Date: 20050811
  Receipt Date: 20050725
  Transmission Date: 20060218
  Serious: Yes (Hospitalization, Other)
  Sender: FDA-Public Use
  Company Number: 2005BI011770

PATIENT
  Age: 61 Year
  Sex: Female
  Weight: 95.2554 kg

DRUGS (5)
  1. AVONEX [Suspect]
     Indication: MULTIPLE SCLEROSIS
     Dosage: 30 UG;QW; IM
     Route: 030
     Dates: start: 20040101, end: 20050605
  2. BACLOFEN [Concomitant]
  3. PROVIGIL [Concomitant]
  4. NEURONTIN [Concomitant]
  5. LOSTATIN [Concomitant]

REACTIONS (6)
  - CEREBROVASCULAR ACCIDENT [None]
  - CONVULSION [None]
  - FATIGUE [None]
  - HEADACHE [None]
  - URINARY TRACT INFECTION [None]
  - WEIGHT INCREASED [None]
